FAERS Safety Report 8350216-7 (Version None)
Quarter: 2012Q2

REPORT INFORMATION
  Report Type: 
  Country: None (occurrence: None)
  Receive Date: 20120510
  Receipt Date: 20120507
  Transmission Date: 20120825
  Serious: Yes (Other)
  Sender: FDA-Public Use
  Company Number: US-ABBOTT-10P-163-0802010-00

PATIENT
  Sex: Male
  Weight: 77.27 kg

DRUGS (1)
  1. ANDROGEL [Suspect]
     Indication: BLOOD TESTOSTERONE DECREASED
     Dosage: DAILY DOSE:  UNKNOWN
     Route: 062
     Dates: start: 20100401, end: 20101001

REACTIONS (5)
  - DYSURIA [None]
  - SCAR [None]
  - HYPOAESTHESIA [None]
  - PROSTATOMEGALY [None]
  - BURNING SENSATION [None]
